FAERS Safety Report 4879596-1 (Version None)
Quarter: 2006Q1

REPORT INFORMATION
  Report Type: 
  Country: None (occurrence: None)
  Receive Date: 20060113
  Receipt Date: 20050527
  Transmission Date: 20060701
  Serious: Yes (Other)
  Sender: FDA-Public Use
  Company Number: US-BRISTOL-MYERS SQUIBB COMPANY-12987806

PATIENT

DRUGS (3)
  1. CISPLATIN [Suspect]
  2. FLUOROURACIL [Suspect]
  3. RADIATION THERAPY [Suspect]

REACTIONS (1)
  - MALIGNANT NEOPLASM PROGRESSION [None]
